FAERS Safety Report 8975843 (Version 1)
Quarter: 2012Q4

REPORT INFORMATION
  Report Type: Report from Study
  Country: AT (occurrence: AT)
  Receive Date: 20121219
  Receipt Date: 20121219
  Transmission Date: 20130627
  Serious: Yes (Hospitalization)
  Sender: FDA-Public Use
  Company Number: PHHY2012AT116552

PATIENT
  Sex: Male
  Weight: 74 kg

DRUGS (9)
  1. GLIVEC [Suspect]
     Indication: GASTROINTESTINAL STROMAL TUMOUR
     Dosage: 400 mg, per day
     Dates: start: 20110820
  2. GLIVEC [Suspect]
     Dosage: 400 mg,  per day
     Dates: start: 20111118
  3. GLIVEC [Suspect]
     Dosage: 400 mg,  per day
     Dates: start: 20120217
  4. GLIVEC [Suspect]
     Dosage: 400 mg,  per day
     Dates: start: 20120511
  5. ESOMEPRAZOLE [Concomitant]
     Indication: PROPHYLAXIS
     Dosage: 40 mg, UNK
     Route: 048
     Dates: start: 20110729
  6. MOMETASONE [Concomitant]
     Dosage: 100 ug, UNK
     Dates: start: 20080626
  7. PHENPROCOUMON [Concomitant]
     Indication: PROPHYLAXIS
     Dosage: 3 mg, UNK
     Route: 048
     Dates: start: 20111004, end: 20111004
  8. PHENPROCOUMON [Concomitant]
     Dosage: 2.25 mg, UNK
     Route: 048
     Dates: start: 20111005, end: 20111005
  9. PHENPROCOUMON [Concomitant]
     Dosage: UNK UKN, UNK
     Route: 048
     Dates: start: 20111006

REACTIONS (2)
  - Deep vein thrombosis [Recovered/Resolved with Sequelae]
  - Abdominal pain upper [Not Recovered/Not Resolved]
